FAERS Safety Report 8037964-3 (Version None)
Quarter: 2012Q1

REPORT INFORMATION
  Report Type: 
  Country: None (occurrence: None)
  Receive Date: 20120111
  Receipt Date: 20120102
  Transmission Date: 20120608
  Serious: Yes (Hospitalization)
  Sender: FDA-Public Use
  Company Number: KR-ASTRAZENECA-2012SE00108

PATIENT
  Age: 26461 Day
  Sex: Male
  Weight: 58 kg

DRUGS (5)
  1. ASPIRIN [Concomitant]
     Indication: CORONARY ARTERY DISEASE
     Route: 048
     Dates: start: 20050514
  2. ISOSORBIDE DINITRATE [Concomitant]
     Indication: CORONARY ARTERY DISEASE
     Route: 048
     Dates: start: 20050510, end: 20050615
  3. CLOPIDOGREL [Concomitant]
     Indication: CORONARY ARTERY DISEASE
     Route: 048
     Dates: start: 20050514
  4. CRESTOR [Suspect]
     Route: 048
     Dates: start: 20050516
  5. ATENOLOL [Concomitant]
     Indication: HYPERTENSION
     Route: 048
     Dates: start: 20050514

REACTIONS (3)
  - URETHRAL STENOSIS [None]
  - HAEMATURIA [None]
  - URETHRAL PAIN [None]
